FAERS Safety Report 16263526 (Version 2)
Quarter: 2019Q2

REPORT INFORMATION
  Report Type: Spontaneous
  Country: AU (occurrence: AU)
  Receive Date: 20190502
  Receipt Date: 20190513
  Transmission Date: 20190711
  Serious: Yes (Life-Threatening, Hospitalization, Other)
  Sender: FDA-Public Use
  Company Number: AU-LUPIN PHARMACEUTICALS INC.-2019-02688

PATIENT
  Age: 16 Year
  Sex: Female

DRUGS (3)
  1. HYDROXYCHLOROQUINE SULFATE TABLETS [Suspect]
     Active Substance: HYDROXYCHLOROQUINE SULFATE
     Indication: LUPUS-LIKE SYNDROME
     Dosage: UNK
     Route: 065
  2. HYDROXYCHLOROQUINE SULFATE TABLETS [Suspect]
     Active Substance: HYDROXYCHLOROQUINE SULFATE
     Dosage: 100 DOSAGE FORM
     Route: 048
  3. SERTRALINE [Suspect]
     Active Substance: SERTRALINE HYDROCHLORIDE
     Indication: DEPRESSION
     Dosage: UNK
     Route: 065

REACTIONS (10)
  - Drug withdrawal syndrome [Unknown]
  - Suicide attempt [Unknown]
  - Electrocardiogram QT prolonged [Recovered/Resolved]
  - Depressed level of consciousness [Recovering/Resolving]
  - Lupus-like syndrome [Unknown]
  - Intentional overdose [Unknown]
  - Electrolyte imbalance [Recovered/Resolved]
  - Hypotension [Recovering/Resolving]
  - Depressed mood [Unknown]
  - Electrocardiogram QRS complex prolonged [Recovered/Resolved]
